FAERS Safety Report 4956669-6 (Version None)
Quarter: 2006Q1

REPORT INFORMATION
  Report Type: 
  Country: None (occurrence: None)
  Receive Date: 20060127
  Receipt Date: 20050715
  Transmission Date: 20060701
  Serious: Yes (Life-Threatening, Hospitalization, Other)
  Sender: FDA-Public Use
  Company Number: 05-07-1220

PATIENT
  Age: 53 Year
  Sex: Female
  Weight: 70.3075 kg

DRUGS (6)
  1. CLOZAPINE [Suspect]
     Indication: SCHIZOPHRENIA, PARANOID TYPE
     Dosage: 500MG QD, ORAL
     Route: 048
     Dates: start: 20030610, end: 20050713
  2. LOPID [Concomitant]
  3. LIPITOR [Concomitant]
  4. COZAAR [Concomitant]
  5. METFORMIN HCL [Concomitant]
  6. OYST-CAL (CALCIUM CARBONATE) [Concomitant]

REACTIONS (2)
  - AGRANULOCYTOSIS [None]
  - LEUKOPENIA [None]
